FAERS Safety Report 4694477-4 (Version None)
Quarter: 2005Q2

REPORT INFORMATION
  Report Type: 
  Country: None (occurrence: None)
  Receive Date: 20050620
  Receipt Date: 20050608
  Transmission Date: 20051028
  Serious: Yes (Hospitalization)
  Sender: FDA-Public Use
  Company Number: US-ROCHE-407340

PATIENT
  Age: 49 Year
  Sex: Male
  Weight: 91.4 kg

DRUGS (6)
  1. RIBAVIRIN [Suspect]
     Indication: HEPATITIS
     Route: 048
     Dates: start: 20041008
  2. RIBAVIRIN [Suspect]
     Route: 048
     Dates: end: 20050309
  3. PEG-INTRON [Suspect]
     Indication: HEPATITIS
     Route: 058
     Dates: start: 20041008
  4. PEG-INTRON [Suspect]
     Dosage: DOSE WAS DECREASED FROM 180MCG WEEKLY.
     Route: 058
     Dates: end: 20050309
  5. ASCORBIC ACID [Concomitant]
     Dosage: TAKEN AT NIGHT.
  6. VITAMIN E [Concomitant]
     Dosage: TAKEN AT NIGHT.

REACTIONS (9)
  - DYSPHAGIA [None]
  - ERYTHEMA [None]
  - MUSCLE FATIGUE [None]
  - PAIN [None]
  - PYREXIA [None]
  - RASH [None]
  - RHEUMATOID FACTOR POSITIVE [None]
  - STOMATITIS [None]
  - TACHYCARDIA [None]
